FAERS Safety Report 7671041-6 (Version None)
Quarter: 2011Q3

REPORT INFORMATION
  Report Type: 
  Country: None (occurrence: None)
  Receive Date: 20110809
  Receipt Date: 20110728
  Transmission Date: 20111222
  Serious: No
  Sender: FDA-Public Use
  Company Number: US-JNJFOC-20110800075

PATIENT
  Sex: Female
  Weight: 54.43 kg

DRUGS (5)
  1. DURAGESIC-100 [Suspect]
     Indication: SCOLIOSIS
     Dosage: 50 MCG EVERY 48 HOURS
     Route: 062
     Dates: start: 20110627
  2. CYMBALTA [Concomitant]
     Indication: NEURALGIA
     Route: 048
     Dates: start: 20100101
  3. OPANA [Concomitant]
     Indication: BREAKTHROUGH PAIN
     Route: 048
  4. NEXIUM [Concomitant]
     Indication: OESOPHAGEAL SPASM
     Route: 048
     Dates: start: 20020101
  5. DURAGESIC-100 [Suspect]
     Dosage: 12.5 MCG EVERY 48 HOURS
     Route: 062
     Dates: start: 20110727

REACTIONS (2)
  - WRONG TECHNIQUE IN DRUG USAGE PROCESS [None]
  - PRODUCT ADHESION ISSUE [None]
